FAERS Safety Report 8119489-X (Version None)
Quarter: 2012Q1

REPORT INFORMATION
  Report Type: 
  Country: None (occurrence: None)
  Receive Date: 20120207
  Receipt Date: 20120130
  Transmission Date: 20120608
  Serious: Yes (Life-Threatening)
  Sender: FDA-Public Use
  Company Number: PHEH2012US002585

PATIENT
  Sex: Female

DRUGS (11)
  1. OHER 5 BLOOD PRESSURE MEDICATIONS [Suspect]
  2. METOPROLOL TARTRATE [Suspect]
     Dosage: 35 MG, ONE PER DAY
  3. DIOVAN [Suspect]
     Dosage: 80 MG, ONE PER DAY
  4. VITAMINS NOS [Suspect]
  5. HYDROCHLOROTHIAZIDE [Suspect]
     Dosage: 12.5 MG, ONE PER DAY
  6. CLONIDINE [Suspect]
     Dosage: 1 MG, ONE PER DAY
  7. ACETAMINOPHEN [Concomitant]
  8. ANTIBIOTICS-ACTION UNCLASSIFIED [Suspect]
  9. BENADRYL [Concomitant]
     Indication: FOOD ALLERGY
  10. PREDNISONE [Suspect]
     Dosage: USED FOR 5 DAYS
  11. COMBIVENT [Suspect]
     Dosage: 4 FOR DAY

REACTIONS (3)
  - DYSPNOEA [None]
  - MALAISE [None]
  - OEDEMA PERIPHERAL [None]
